FAERS Safety Report 24451173 (Version 2)
Quarter: 2024Q4

REPORT INFORMATION
  Report Type: Spontaneous
  Country: AT (occurrence: AT)
  Receive Date: 20241017
  Receipt Date: 20241113
  Transmission Date: 20250115
  Serious: Yes (Other)
  Sender: FRESENIUS KABI
  Company Number: AT-ABBVIE-5939063

PATIENT
  Age: 47 Year
  Sex: Female

DRUGS (1)
  1. ADALIMUMAB [Suspect]
     Active Substance: ADALIMUMAB
     Indication: Crohn^s disease
     Dosage: FORM OF ADMIN: SOLUTION FOR INJECTION IN PRE-FILLED PEN
     Route: 058
     Dates: start: 202207, end: 202408

REACTIONS (16)
  - Lymphocytic infiltration [Unknown]
  - Superficial inflammatory dermatosis [Unknown]
  - Systemic lupus erythematosus rash [Unknown]
  - Neutrophilic dermatosis [Unknown]
  - Dermatitis [Unknown]
  - C-reactive protein increased [Unknown]
  - Swelling [Unknown]
  - Urticaria [Unknown]
  - Arthralgia [Unknown]
  - Bursitis [Unknown]
  - Unevaluable event [Unknown]
  - Antinuclear antibody increased [Unknown]
  - Fluid retention [Unknown]
  - Hypergammaglobulinaemia [Unknown]
  - Antinuclear antibody positive [Unknown]
  - Rash [Unknown]
